FAERS Safety Report 20600312 (Version 1)
Quarter: 2022Q1

REPORT INFORMATION
  Report Type: Spontaneous
  Country: US (occurrence: US)
  Receive Date: 20220316
  Receipt Date: 20220316
  Transmission Date: 20220423
  Serious: No
  Sender: FDA-Public Use
  Company Number: US-BRISTOL-MYERS SQUIBB COMPANY-BMS-2022-035525

PATIENT
  Age: 73 Year
  Sex: Female

DRUGS (4)
  1. KENALOG-10 [Suspect]
     Active Substance: TRIAMCINOLONE ACETONIDE
     Indication: Arthralgia
     Dosage: UNK
     Route: 065
     Dates: start: 2012, end: 2016
  2. VITAMINS NOS [Concomitant]
     Active Substance: VITAMINS
     Indication: Product used for unknown indication
     Dosage: UNK
     Route: 065
  3. MOTRIN [Concomitant]
     Active Substance: IBUPROFEN
     Indication: Pain in extremity
     Dosage: UNK
     Route: 065
  4. UNSPECIFIED INGREDIENT [Concomitant]
     Active Substance: UNSPECIFIED INGREDIENT
     Indication: Product used for unknown indication
     Dosage: UNK
     Route: 065

REACTIONS (2)
  - Joint lock [Unknown]
  - Breast swelling [Unknown]
